FAERS Safety Report 11526985 (Version 1)
Quarter: 2015Q3

REPORT INFORMATION
  Report Type: Spontaneous
  Country: US (occurrence: US)
  Receive Date: 20150903
  Receipt Date: 20150903
  Transmission Date: 20151125
  Serious: No
  Sender: FDA-Public Use
  Company Number: US-ELI_LILLY_AND_COMPANY-US201207005600

PATIENT
  Age: 63 Year
  Sex: Female

DRUGS (4)
  1. CYMBALTA [Suspect]
     Active Substance: DULOXETINE HYDROCHLORIDE
     Dosage: 60 MG, QD
  2. CYMBALTA [Suspect]
     Active Substance: DULOXETINE HYDROCHLORIDE
     Indication: DEPRESSION
     Dosage: 30 MG, QD
     Dates: start: 20110601
  3. CYMBALTA [Suspect]
     Active Substance: DULOXETINE HYDROCHLORIDE
     Dosage: 60 MG, QD
     Dates: start: 201106
  4. CYMBALTA [Suspect]
     Active Substance: DULOXETINE HYDROCHLORIDE
     Dosage: 60 MG, BID
     Dates: start: 201106

REACTIONS (13)
  - Feeling abnormal [Not Recovered/Not Resolved]
  - Anger [Unknown]
  - Crying [Not Recovered/Not Resolved]
  - Frustration [Unknown]
  - Depression [Not Recovered/Not Resolved]
  - Feeling hot [Unknown]
  - Drug dose omission [Not Recovered/Not Resolved]
  - Decreased appetite [Unknown]
  - Agitation [Unknown]
  - Depressed mood [Unknown]
  - Feeling abnormal [Unknown]
  - Poor quality sleep [Unknown]
  - Hyperhidrosis [Unknown]

NARRATIVE: CASE EVENT DATE: 20131001
